FAERS Safety Report 12667195 (Version 3)
Quarter: 2019Q1

REPORT INFORMATION
  Report Type: Spontaneous
  Country: US (occurrence: US)
  Receive Date: 20160819
  Receipt Date: 20190219
  Transmission Date: 20190417
  Serious: Yes (Hospitalization, Other)
  Sender: FDA-Public Use
  Company Number: US-SA-2016SA150248

PATIENT
  Age: 83 Year
  Sex: Female

DRUGS (2)
  1. SEVELAMER CARBONATE. [Suspect]
     Active Substance: SEVELAMER CARBONATE
     Indication: HYPERPHOSPHATAEMIA
     Dosage: 1.6 G,TID
     Route: 065
  2. SEVELAMER CARBONATE. [Suspect]
     Active Substance: SEVELAMER CARBONATE
     Indication: END STAGE RENAL DISEASE

REACTIONS (10)
  - Large intestine perforation [Unknown]
  - Colitis ischaemic [Unknown]
  - Unresponsive to stimuli [Unknown]
  - Serositis [Unknown]
  - Gastric ulcer [Unknown]
  - Pyrexia [Unknown]
  - Gastrointestinal necrosis [Unknown]
  - Hypotension [Unknown]
  - Abdominal distension [Unknown]
  - Crystal deposit intestine [Unknown]
